FAERS Safety Report 7215042-0 (Version None)
Quarter: 2011Q1

REPORT INFORMATION
  Report Type: 
  Country: None (occurrence: None)
  Receive Date: 20110107
  Receipt Date: 20100721
  Transmission Date: 20110831
  Serious: No
  Sender: FDA-Public Use
  Company Number: A0871664A

PATIENT
  Sex: Female

DRUGS (2)
  1. PLAVIX [Concomitant]
  2. LOVAZA [Suspect]
     Dosage: 4CAP PER DAY
     Route: 048
     Dates: start: 20100719

REACTIONS (1)
  - DIZZINESS [None]
